FAERS Safety Report 6276406-5 (Version None)
Quarter: 2009Q3

REPORT INFORMATION
  Report Type: 
  Country: None (occurrence: None)
  Receive Date: 20090720
  Receipt Date: 20090317
  Transmission Date: 20100115
  Serious: Yes (Life-Threatening, Other)
  Sender: FDA-Public Use
  Company Number: 2009PV000026

PATIENT
  Sex: Female

DRUGS (2)
  1. DEPODUR [Suspect]
     Indication: PROCEDURAL PAIN
     Dosage: 10 MG
  2. .. [Concomitant]

REACTIONS (1)
  - CARDIAC ARREST [None]
